FAERS Safety Report 16475959 (Version 2)
Quarter: 2021Q2

REPORT INFORMATION
  Report Type: Spontaneous
  Country: US (occurrence: US)
  Receive Date: 20190625
  Receipt Date: 20210611
  Transmission Date: 20210716
  Serious: Yes (Death, Other)
  Sender: FDA-Public Use
  Company Number: US-ASTRAZENECA-2019SE89352

PATIENT
  Age: 62 Year
  Sex: Male
  Weight: 136.1 kg

DRUGS (32)
  1. TRAZODONE [Concomitant]
     Active Substance: TRAZODONE HYDROCHLORIDE
     Indication: SLEEP DISORDER
     Dates: start: 200512, end: 201609
  2. LISINOPRIL. [Concomitant]
     Active Substance: LISINOPRIL
     Indication: BLOOD PRESSURE MEASUREMENT
     Dates: start: 200708, end: 200812
  3. METFORMIN [Concomitant]
     Active Substance: METFORMIN HYDROCHLORIDE
     Indication: DIABETES MELLITUS
     Dates: start: 200411, end: 200808
  4. ACTOS [Concomitant]
     Active Substance: PIOGLITAZONE HYDROCHLORIDE
     Indication: DIABETES MELLITUS
     Dates: start: 200612, end: 200703
  5. FAMOTIDINE OTC [Concomitant]
     Active Substance: FAMOTIDINE
  6. ZANTAC 150 OTC [Concomitant]
  7. VIGOMOX [Concomitant]
     Dates: start: 1999, end: 2000
  8. CYCLOBENZAPR [Concomitant]
     Active Substance: CYCLOBENZAPRINE
     Dates: start: 1999, end: 2000
  9. TRAZODONE [Concomitant]
     Active Substance: TRAZODONE HYDROCHLORIDE
     Dates: start: 1999, end: 2000
  10. PLAVIX [Concomitant]
     Active Substance: CLOPIDOGREL BISULFATE
     Dates: start: 1999, end: 2000
  11. PREVACID 24 HR [Suspect]
     Active Substance: LANSOPRAZOLE
     Indication: GASTROOESOPHAGEAL REFLUX DISEASE
     Dosage: PREVACID OTC
     Route: 065
     Dates: start: 2004, end: 2014
  12. METRONIDAZOLE. [Concomitant]
     Active Substance: METRONIDAZOLE
     Dates: start: 1999, end: 2000
  13. PRILOSEC OTC [Suspect]
     Active Substance: OMEPRAZOLE MAGNESIUM
     Indication: GASTROOESOPHAGEAL REFLUX DISEASE
     Route: 048
     Dates: start: 20121212
  14. METOPROLOL. [Concomitant]
     Active Substance: METOPROLOL
     Indication: BLOOD PRESSURE MEASUREMENT
     Dates: start: 200708, end: 201604
  15. BYETTA [Concomitant]
     Active Substance: EXENATIDE
     Indication: DIABETES MELLITUS
     Dates: start: 200708, end: 200710
  16. LIPITOR [Concomitant]
     Active Substance: ATORVASTATIN CALCIUM
     Indication: BLOOD CHOLESTEROL
     Dates: start: 200609, end: 200702
  17. TYLENOL [Concomitant]
     Active Substance: ACETAMINOPHEN
     Indication: PAIN
  18. PEPCID AC [Concomitant]
     Active Substance: FAMOTIDINE
  19. ALBUTEROL. [Concomitant]
     Active Substance: ALBUTEROL
     Indication: ASTHMA
     Dates: start: 200604, end: 201409
  20. GLYBURIDE. [Concomitant]
     Active Substance: GLYBURIDE
     Indication: DIABETES MELLITUS
     Dates: start: 200411, end: 200805
  21. TAGAMET HB (OTC) [Concomitant]
  22. AMOXICILLIN. [Concomitant]
     Active Substance: AMOXICILLIN
     Dates: start: 1999, end: 2000
  23. PRILOSEC OTC [Suspect]
     Active Substance: OMEPRAZOLE MAGNESIUM
     Indication: GASTROOESOPHAGEAL REFLUX DISEASE
     Route: 048
     Dates: start: 2014, end: 2016
  24. PRILOSEC [Suspect]
     Active Substance: OMEPRAZOLE MAGNESIUM
     Indication: GASTROOESOPHAGEAL REFLUX DISEASE
     Route: 048
     Dates: start: 201406, end: 201611
  25. CLINDAMYCIN. [Concomitant]
     Active Substance: CLINDAMYCIN
     Dates: start: 1999, end: 2000
  26. KLOR?CON [Concomitant]
     Active Substance: POTASSIUM CHLORIDE
     Dates: start: 1999, end: 2000
  27. PREVACID [Suspect]
     Active Substance: LANSOPRAZOLE
     Route: 065
     Dates: start: 200401, end: 201406
  28. FUROSEMIDE. [Concomitant]
     Active Substance: FUROSEMIDE
     Indication: SLEEP DISORDER
     Dates: start: 200512, end: 201609
  29. PRILOSEC [Suspect]
     Active Substance: OMEPRAZOLE MAGNESIUM
     Indication: GASTROOESOPHAGEAL REFLUX DISEASE
     Dosage: GENERIC
     Route: 065
     Dates: start: 2009
  30. PREVACID 24 HR [Suspect]
     Active Substance: LANSOPRAZOLE
     Indication: GASTROOESOPHAGEAL REFLUX DISEASE
     Route: 065
  31. ROLAIDS [Concomitant]
     Active Substance: CALCIUM CARBONATE\MAGNESIUM HYDROXIDE
     Dates: start: 1999, end: 2000
  32. LOVASTATIN. [Concomitant]
     Active Substance: LOVASTATIN
     Dates: start: 1999, end: 2000

REACTIONS (3)
  - Chronic kidney disease-mineral and bone disorder [Unknown]
  - Chronic kidney disease [Not Recovered/Not Resolved]
  - Acute kidney injury [Fatal]

NARRATIVE: CASE EVENT DATE: 2012
